APPROVED DRUG PRODUCT: RHUZDAH
Active Ingredient: ETHINYL ESTRADIOL; NORETHINDRONE
Strength: 0.035MG;0.4MG
Dosage Form/Route: TABLET;ORAL-28
Application: A207585 | Product #001
Applicant: AUROBINDO PHARMA LTD
Approved: Oct 11, 2022 | RLD: No | RS: No | Type: DISCN